APPROVED DRUG PRODUCT: SANDIMMUNE
Active Ingredient: CYCLOSPORINE
Strength: 50MG
Dosage Form/Route: CAPSULE;ORAL
Application: N050625 | Product #003 | TE Code: BX
Applicant: NOVARTIS PHARMACEUTICALS CORP
Approved: Nov 23, 1992 | RLD: Yes | RS: No | Type: RX